FAERS Safety Report 6107989-3 (Version None)
Quarter: 2009Q1

REPORT INFORMATION
  Report Type: 
  Country: None (occurrence: None)
  Receive Date: 20090309
  Receipt Date: 20090204
  Transmission Date: 20090719
  Serious: No
  Sender: FDA-Public Use
  Company Number: US-BAYER-200910453BCC

PATIENT
  Age: 75 Year
  Sex: Female
  Weight: 97 kg

DRUGS (8)
  1. ALEVE [Suspect]
     Indication: BACK PAIN
     Dosage: UNIT DOSE: 220 MG
     Route: 048
     Dates: start: 20090203
  2. ALEVE [Suspect]
     Dosage: UNIT DOSE: 220 MG
     Route: 048
     Dates: start: 20090203
  3. ALEVE [Suspect]
     Dosage: UNIT DOSE: 220 MG
     Route: 048
     Dates: start: 20090204
  4. METFORMIN [Concomitant]
  5. ACEON [Concomitant]
  6. THIORIDAZINE HCL [Concomitant]
  7. ZOLPIDEM TARTRATE [Concomitant]
  8. HYDROCHLOROTHIAZIDE [Concomitant]
     Dosage: TOTAL DAILY DOSE: 0.5 DF

REACTIONS (1)
  - WEIGHT INCREASED [None]
